FAERS Safety Report 10093733 (Version 1)
Quarter: 2014Q2

REPORT INFORMATION
  Report Type: Spontaneous
  Country: US (occurrence: US)
  Receive Date: 20140421
  Receipt Date: 20140421
  Transmission Date: 20141212
  Serious: No
  Sender: FDA-Public Use
  Company Number: US-SANOFI-AVENTIS-2013SA080955

PATIENT
  Age: 90 Year
  Sex: Male
  Weight: 84.37 kg

DRUGS (3)
  1. ALLEGRA [Suspect]
     Indication: URTICARIA
     Dosage: TAKEN FROM:A MONTH AGO
     Route: 048
     Dates: start: 20130701, end: 20130815
  2. ALLEGRA [Suspect]
     Indication: URTICARIA
     Route: 048
     Dates: start: 20130828
  3. DAPSONE [Concomitant]
     Indication: URTICARIA
     Dates: start: 20130608, end: 20130815

REACTIONS (3)
  - Urticaria chronic [Not Recovered/Not Resolved]
  - Drug ineffective [Unknown]
  - Extra dose administered [Unknown]
